FAERS Safety Report 9831272 (Version 1)
Quarter: 2014Q1

REPORT INFORMATION
  Report Type: Report from Study
  Country: US (occurrence: US)
  Receive Date: 20140121
  Receipt Date: 20140121
  Transmission Date: 20141002
  Serious: Yes (Other)
  Sender: FDA-Public Use
  Company Number: US-ROCHE-1335328

PATIENT
  Sex: 0

DRUGS (7)
  1. RITUXIMAB [Suspect]
     Indication: DIFFUSE LARGE B-CELL LYMPHOMA
     Route: 065
  2. RITUXIMAB [Suspect]
     Indication: CHRONIC LYMPHOCYTIC LEUKAEMIA
  3. RITUXIMAB [Suspect]
     Indication: PLASMA CELL MYELOMA
  4. RITUXIMAB [Suspect]
     Indication: MANTLE CELL LYMPHOMA
  5. RITUXIMAB [Suspect]
     Indication: HODGKIN^S DISEASE
  6. RITUXIMAB [Suspect]
     Indication: BURKITT^S LYMPHOMA
  7. RITUXIMAB [Suspect]
     Indication: LYMPHOMA

REACTIONS (1)
  - Lymphocytic leukaemia [Unknown]
